FAERS Safety Report 19369637 (Version 1)
Quarter: 2021Q2

REPORT INFORMATION
  Report Type: Spontaneous
  Country: BE (occurrence: BE)
  Receive Date: 20210603
  Receipt Date: 20210603
  Transmission Date: 20210717
  Serious: Yes (Death)
  Sender: FDA-Public Use
  Company Number: BE-ELI_LILLY_AND_COMPANY-BE202106000361

PATIENT
  Age: 67 Year
  Sex: Female
  Weight: 79.5 kg

DRUGS (1)
  1. ALIMTA [Suspect]
     Active Substance: PEMETREXED DISODIUM
     Indication: THYMIC CANCER METASTATIC
     Dosage: 500 MG/M2, UNKNOWN
     Route: 065
     Dates: start: 20201214, end: 20210115

REACTIONS (1)
  - Death [Fatal]
